FAERS Safety Report 24964835 (Version 1)
Quarter: 2025Q1

REPORT INFORMATION
  Report Type: Spontaneous
  Country: CN (occurrence: CN)
  Receive Date: 20250213
  Receipt Date: 20250213
  Transmission Date: 20250409
  Serious: Yes (Life-Threatening, Hospitalization)
  Sender: ACCORD
  Company Number: CN-Accord-469169

PATIENT
  Age: 65 Year
  Sex: Male

DRUGS (5)
  1. OXALIPLATIN [Suspect]
     Active Substance: OXALIPLATIN
     Indication: Angiocentric lymphoma
     Dosage: ON THE DAY 1, EVERY 3 WEEKS (3 CYCLE)
     Dates: start: 202204, end: 2022
  2. GEMCITABINE [Concomitant]
     Active Substance: GEMCITABINE
     Indication: Angiocentric lymphoma
     Dates: start: 202204
  3. PEGASPARGASE [Concomitant]
     Active Substance: PEGASPARGASE
     Indication: Angiocentric lymphoma
     Dosage: 3750 IU ON THE DAY 1, EVERY 3 WEEKS
     Dates: start: 202204
  4. TORIPALIMAB [Concomitant]
     Active Substance: TORIPALIMAB
     Indication: Angiocentric lymphoma
     Dosage: ON THE DAY 0, EVERY 3 WEEKS
     Dates: start: 202204
  5. OXALIPLATIN [Suspect]
     Active Substance: OXALIPLATIN
     Indication: Angiocentric lymphoma
     Dosage: ON THE DAY 1 OF FOURTH CYCLE; APPROXIMATELY 50 MG
     Dates: start: 202207

REACTIONS (5)
  - Infusion related hypersensitivity reaction [Recovered/Resolved]
  - Cytokine release syndrome [Recovered/Resolved]
  - Hypokalaemia [Recovering/Resolving]
  - Pleural effusion [Recovering/Resolving]
  - Sinus tachycardia [Recovering/Resolving]

NARRATIVE: CASE EVENT DATE: 20220701
